FAERS Safety Report 7669575-3 (Version None)
Quarter: 2011Q3

REPORT INFORMATION
  Report Type: 
  Country: None (occurrence: None)
  Receive Date: 20110803
  Receipt Date: 20110719
  Transmission Date: 20111222
  Serious: Yes (Other)
  Sender: FDA-Public Use
  Company Number: 2011MA008036

PATIENT
  Age: 37 Year

DRUGS (2)
  1. RIFAMPICIN [Suspect]
     Indication: TUBERCULOSIS
  2. ISONIAZID [Suspect]
     Indication: TUBERCULOSIS

REACTIONS (11)
  - THROMBOCYTOPENIA [None]
  - VOMITING [None]
  - RENAL FAILURE [None]
  - PURPURA [None]
  - OLIGURIA [None]
  - JAUNDICE [None]
  - CELL DEATH [None]
  - DRUG ERUPTION [None]
  - HEPATOMEGALY [None]
  - HYPERSENSITIVITY [None]
  - ANAPHYLACTIC SHOCK [None]
